FAERS Safety Report 6922626-3 (Version None)
Quarter: 2010Q3

REPORT INFORMATION
  Report Type: 
  Country: None (occurrence: None)
  Receive Date: 20100813
  Receipt Date: 20100805
  Transmission Date: 20110219
  Serious: Yes (Hospitalization)
  Sender: FDA-Public Use
  Company Number: JP-BRISTOL-MYERS SQUIBB COMPANY-15201270

PATIENT
  Age: 66 Year
  Sex: Female
  Weight: 49 kg

DRUGS (6)
  1. SAXAGLIPTIN [Suspect]
     Indication: TYPE 2 DIABETES MELLITUS
     Route: 048
     Dates: start: 20100222, end: 20100425
  2. MUCOSTA [Concomitant]
     Dosage: TABLET
     Dates: start: 20100406, end: 20100410
  3. LOXONIN [Concomitant]
     Dosage: TABLET
     Dates: start: 20100406, end: 20100410
  4. NEOSTIGMINE [Concomitant]
     Dosage: NEOSTIGMINE_INORGANIC SALTS COMBINED DRUG, EYE DROPS
     Dates: start: 20041222
  5. CRESTOR [Concomitant]
     Dosage: TABLET
     Dates: start: 20071127
  6. ARTIFICIAL TEARS [Concomitant]
     Dosage: MYTEAR BORIC ACID-INORGANIC, EYE DROPS
     Dates: start: 20030725

REACTIONS (1)
  - POLYMYALGIA RHEUMATICA [None]
